FAERS Safety Report 4978213-X (Version None)
Quarter: 2006Q2

REPORT INFORMATION
  Report Type: 
  Country: None (occurrence: None)
  Receive Date: 20060417
  Receipt Date: 20060403
  Transmission Date: 20061013
  Serious: Yes (Hospitalization)
  Sender: FDA-Public Use
  Company Number: 8016055

PATIENT
  Age: 87 Year
  Sex: Male

DRUGS (1)
  1. KEPPRA [Suspect]
     Dosage: 1000 MG 2/D PO
     Route: 048
     Dates: start: 20060101, end: 20060101

REACTIONS (3)
  - BRADYCARDIA [None]
  - DIALYSIS [None]
  - ELECTROCARDIOGRAM QT PROLONGED [None]
